FAERS Safety Report 5311693-9 (Version None)
Quarter: 2007Q2

REPORT INFORMATION
  Report Type: 
  Country: None (occurrence: None)
  Receive Date: 20070426
  Receipt Date: 20070426
  Transmission Date: 20071010
  Serious: Yes (Other)
  Sender: FDA-Public Use
  Company Number: None

PATIENT
  Age: 46 Year
  Sex: Female
  Weight: 154.223 kg

DRUGS (1)
  1. LAMICTAL [Suspect]
     Indication: DEPRESSION
     Dosage: 25 MG ONCE A DAY PO
     Route: 048
     Dates: start: 20070126, end: 20070129

REACTIONS (4)
  - DRUG HYPERSENSITIVITY [None]
  - EYE DISCHARGE [None]
  - ORAL MUCOSAL DISCOLOURATION [None]
  - STOMATITIS [None]
